FAERS Safety Report 5137369-9 (Version None)
Quarter: 2006Q4

REPORT INFORMATION
  Report Type: 
  Country: None (occurrence: None)
  Receive Date: 20061030
  Receipt Date: 20051020
  Transmission Date: 20070319
  Serious: No
  Sender: FDA-Public Use
  Company Number: US-GLAXOSMITHKLINE-A0578976A

PATIENT
  Age: 56 Year
  Sex: Female

DRUGS (4)
  1. ADVAIR HFA [Suspect]
     Indication: ASTHMA
     Dosage: 1PUFF TWICE PER DAY
     Route: 055
  2. FOSAMAX [Concomitant]
  3. PREMPRO [Concomitant]
  4. SYNTHROID [Concomitant]

REACTIONS (2)
  - HYPOAESTHESIA ORAL [None]
  - ORAL MUCOSAL ERUPTION [None]
